FAERS Safety Report 9852434 (Version 2)
Quarter: 2014Q1

REPORT INFORMATION
  Report Type: Spontaneous
  Country: BR (occurrence: BR)
  Receive Date: 20140129
  Receipt Date: 20140129
  Transmission Date: 20141002
  Serious: Yes (Other)
  Sender: FDA-Public Use
  Company Number: BR-SANOFI-AVENTIS-2013SA039861

PATIENT
  Age: 34 Year
  Sex: Female
  Weight: 103 kg

DRUGS (5)
  1. CLEXANE [Suspect]
     Indication: HYPERCOAGULATION
     Route: 065
     Dates: start: 20130404
  2. CENTRUM [Concomitant]
     Indication: ILL-DEFINED DISORDER
     Route: 048
     Dates: start: 201209
  3. FOLIC ACID [Concomitant]
     Indication: PROPHYLAXIS
     Route: 048
     Dates: start: 201209
  4. METFORMIN [Concomitant]
     Indication: BLOOD GLUCOSE ABNORMAL
     Route: 048
     Dates: start: 201211
  5. PROGESTERONE [Concomitant]
     Indication: PREGNANCY
     Route: 067
     Dates: start: 20130331

REACTIONS (2)
  - Foetal death [Unknown]
  - Exposure during pregnancy [Unknown]
